FAERS Safety Report 18604660 (Version 3)
Quarter: 2021Q1

REPORT INFORMATION
  Report Type: Report from Study
  Country: FR (occurrence: FR)
  Receive Date: 20201211
  Receipt Date: 20210212
  Transmission Date: 20210419
  Serious: Yes (Death, Hospitalization, Other)
  Sender: FDA-Public Use
  Company Number: FR-ROCHE-2718847

PATIENT
  Age: 76 Year
  Sex: Male

DRUGS (9)
  1. DEXAMETHASONE. [Suspect]
     Active Substance: DEXAMETHASONE
     Indication: COVID-19
     Dosage: 4MG/ML
     Route: 042
     Dates: start: 20201009, end: 20201011
  2. TOCILIZUMAB. [Suspect]
     Active Substance: TOCILIZUMAB
     Indication: COVID-19
     Dosage: 20 MG/ML,, LAST DOSE WAS RECEIVED ON 11/OCT/2020
     Route: 042
     Dates: start: 20201009, end: 20201009
  3. LANSOPRAZOLE. [Concomitant]
     Active Substance: LANSOPRAZOLE
  4. HYDROXYZINE [Concomitant]
     Active Substance: HYDROXYZINE HYDROCHLORIDE
  5. TOCILIZUMAB. [Suspect]
     Active Substance: TOCILIZUMAB
     Dosage: 20 MG/ML,, LAST DOSE WAS RECEIVED ON 11/OCT/2020
     Route: 042
     Dates: start: 20201011, end: 20201011
  6. MEROPENEM. [Concomitant]
     Active Substance: MEROPENEM
  7. TIGECYCLINE. [Concomitant]
     Active Substance: TIGECYCLINE
  8. ATRACURIUM [Suspect]
     Active Substance: ATRACURIUM
     Indication: PRODUCT USED FOR UNKNOWN INDICATION
     Route: 065
     Dates: start: 20201011
  9. ACYCLOVIR. [Concomitant]
     Active Substance: ACYCLOVIR

REACTIONS (5)
  - Pneumonia [Not Recovered/Not Resolved]
  - Sinus bradycardia [Not Recovered/Not Resolved]
  - Respiratory distress [Fatal]
  - Pneumonia bacterial [Not Recovered/Not Resolved]
  - Gamma-glutamyltransferase increased [Recovered/Resolved]

NARRATIVE: CASE EVENT DATE: 20201011
